FAERS Safety Report 16483592 (Version 1)
Quarter: 2019Q2

REPORT INFORMATION
  Report Type: Spontaneous
  Country: US (occurrence: US)
  Receive Date: 20190516
  Receipt Date: 20190516
  Transmission Date: 20190711
  Serious: No
  Sender: FDA-Public Use
  Company Number: None

PATIENT
  Age: 30 Year
  Sex: Female

DRUGS (1)
  1. TOBI PODHALER [Suspect]
     Active Substance: TOBRAMYCIN
     Dates: start: 201904

REACTIONS (3)
  - Thirst decreased [None]
  - High fat diet [None]
  - Product dose omission [None]

NARRATIVE: CASE EVENT DATE: 20190425
